FAERS Safety Report 24559987 (Version 2)
Quarter: 2025Q1

REPORT INFORMATION
  Report Type: Report from Study
  Country: US (occurrence: US)
  Receive Date: 20241029
  Receipt Date: 20250124
  Transmission Date: 20250409
  Serious: Yes (Other)
  Sender: BAYER HEALTHCARE LLC
  Company Number: US-BAYER-2024A153221

PATIENT
  Age: 38 Year
  Sex: Female

DRUGS (4)
  1. ASPIRIN [Suspect]
     Active Substance: ASPIRIN
     Indication: Gynaecological disorder prophylaxis
  2. ASPIRIN [Suspect]
     Active Substance: ASPIRIN
     Indication: Gynaecological disorder prophylaxis
  3. ASPIRIN [Suspect]
     Active Substance: ASPIRIN
     Indication: Gynaecological disorder prophylaxis
  4. IBUPROFEN [Suspect]
     Active Substance: IBUPROFEN

REACTIONS (5)
  - Angioedema [Recovered/Resolved]
  - Dyspnoea [None]
  - Pharyngeal swelling [None]
  - Drug hypersensitivity [Recovered/Resolved]
  - Lacrimation increased [Recovered/Resolved]
